FAERS Safety Report 16827351 (Version 1)
Quarter: 2019Q3

REPORT INFORMATION
  Report Type: Spontaneous
  Country: SE (occurrence: SE)
  Receive Date: 20190919
  Receipt Date: 20190919
  Transmission Date: 20191005
  Serious: Yes (Hospitalization, Other)
  Sender: FDA-Public Use
  Company Number: SE-OTSUKA-2019_032292

PATIENT
  Age: 54 Year
  Sex: Male

DRUGS (2)
  1. SAMSCA [Suspect]
     Active Substance: TOLVAPTAN
     Indication: INAPPROPRIATE ANTIDIURETIC HORMONE SECRETION
     Dosage: 15 MG, 1X1 (QD)
     Route: 065
  2. SAMSCA [Suspect]
     Active Substance: TOLVAPTAN
     Indication: HYPONATRAEMIA
     Dosage: 30 MG, UNK
     Route: 065
     Dates: start: 2017

REACTIONS (5)
  - Malignant melanoma [Unknown]
  - Extradural neoplasm [Unknown]
  - Metastatic neoplasm [Unknown]
  - Drug monitoring procedure incorrectly performed [Unknown]
  - Accidental overdose [Unknown]

NARRATIVE: CASE EVENT DATE: 2017
